FAERS Safety Report 4488195-5 (Version None)
Quarter: 2004Q4

REPORT INFORMATION
  Report Type: 
  Country: None (occurrence: None)
  Receive Date: 20041025
  Receipt Date: 20041006
  Transmission Date: 20050328
  Serious: Yes (Hospitalization)
  Sender: FDA-Public Use
  Company Number: 2004075986

PATIENT
  Age: 67 Year
  Sex: Female
  Weight: 58.9676 kg

DRUGS (4)
  1. BENADRYL [Suspect]
     Indication: PRURITUS
     Dates: start: 20041002
  2. BENGAY PAIN RELIEVING PATCH (MENTHOL) [Suspect]
     Indication: BACK PAIN
     Dosage: TOPICAL
     Route: 061
     Dates: start: 20041001, end: 20041002
  3. ATORVASTATIN (ATORVASTATIN) [Concomitant]
  4. LISINOPRIL [Concomitant]

REACTIONS (2)
  - RASH PRURITIC [None]
  - URTICARIA [None]
